FAERS Safety Report 12300824 (Version 2)
Quarter: 2016Q2

REPORT INFORMATION
  Report Type: Spontaneous
  Country: CA (occurrence: CA)
  Receive Date: 20160425
  Receipt Date: 20160427
  Transmission Date: 20160815
  Serious: Yes (Hospitalization, Disabling, Other)
  Sender: FDA-Public Use
  Company Number: CA-SA-2016SA078107

PATIENT
  Age: 65 Year
  Sex: Male

DRUGS (5)
  1. CAPECITABINE. [Suspect]
     Active Substance: CAPECITABINE
     Indication: RECTAL ADENOCARCINOMA
     Route: 048
  2. OXALIPLATIN. [Suspect]
     Active Substance: OXALIPLATIN
     Indication: RECTAL ADENOCARCINOMA
     Route: 042
  3. FLUOROURACIL. [Suspect]
     Active Substance: FLUOROURACIL
     Indication: RECTAL ADENOCARCINOMA
     Route: 042
  4. CAPECITABINE. [Suspect]
     Active Substance: CAPECITABINE
     Indication: RECTAL ADENOCARCINOMA
     Dosage: 3300 MG PER DAY
     Route: 048
  5. LEUCOVORIN. [Suspect]
     Active Substance: LEUCOVORIN
     Indication: RECTAL ADENOCARCINOMA
     Dosage: 8 CYCLICAL
     Route: 042

REACTIONS (23)
  - Pain in extremity [Recovered/Resolved]
  - Dermatitis [Recovered/Resolved]
  - Lasegue^s test positive [Recovering/Resolving]
  - Myositis [Recovering/Resolving]
  - Gait disturbance [Recovering/Resolving]
  - Pain [Recovered/Resolved]
  - Reflexes abnormal [Recovering/Resolving]
  - Muscle oedema [Recovering/Resolving]
  - Electromyogram abnormal [Recovering/Resolving]
  - Skin ulcer [Recovered/Resolved]
  - Erythema [Recovered/Resolved]
  - Pain in extremity [Recovering/Resolving]
  - Groin pain [Recovered/Resolved]
  - Posture abnormal [Recovering/Resolving]
  - Perianal erythema [Recovered/Resolved]
  - Excoriation [Recovered/Resolved]
  - Muscular weakness [Recovering/Resolving]
  - Groin pain [Recovering/Resolving]
  - Nuclear magnetic resonance imaging abnormal [Recovering/Resolving]
  - Motor dysfunction [Recovering/Resolving]
  - Palmar-plantar erythrodysaesthesia syndrome [Unknown]
  - Skin exfoliation [Recovered/Resolved]
  - Neuropathy peripheral [Unknown]
